FAERS Safety Report 19207543 (Version 3)
Quarter: 2021Q2

REPORT INFORMATION
  Report Type: Spontaneous
  Country: FR (occurrence: FR)
  Receive Date: 20210503
  Receipt Date: 20210512
  Transmission Date: 20210717
  Serious: Yes (Life-Threatening, Hospitalization, Other)
  Sender: FDA-Public Use
  Company Number: FR-SA-2021SA141907

PATIENT
  Age: 59 Year
  Sex: Female

DRUGS (4)
  1. DOCETAXEL. [Suspect]
     Active Substance: DOCETAXEL
     Indication: HORMONE RECEPTOR POSITIVE BREAST CANCER
     Dosage: 75 MG/M2, QCY
  2. DOCETAXEL. [Suspect]
     Active Substance: DOCETAXEL
     Indication: HER2 POSITIVE BREAST CANCER
     Dosage: 75 MG/M2, QCY
  3. CYCLOPHOSPHAMIDE. [Concomitant]
     Active Substance: CYCLOPHOSPHAMIDE
     Indication: HORMONE RECEPTOR POSITIVE BREAST CANCER
     Dosage: 600 MG/M2, QCY
  4. CYCLOPHOSPHAMIDE. [Concomitant]
     Active Substance: CYCLOPHOSPHAMIDE
     Indication: HER2 POSITIVE BREAST CANCER
     Dosage: 600 MG/M2, QCY

REACTIONS (22)
  - Thrombotic microangiopathy [Unknown]
  - Haptoglobin decreased [Unknown]
  - Thrombocytopenia [Unknown]
  - Scleroderma renal crisis [Unknown]
  - Hypertension [Unknown]
  - Interstitial lung disease [Unknown]
  - Raynaud^s phenomenon [Unknown]
  - ADAMTS13 activity decreased [Unknown]
  - Hypoxia [Unknown]
  - Right ventricular failure [Unknown]
  - Loss of consciousness [Unknown]
  - Toxicity to various agents [Unknown]
  - Systemic scleroderma [Unknown]
  - Haemolytic anaemia [Unknown]
  - Posterior reversible encephalopathy syndrome [Unknown]
  - Sphincter of Oddi dysfunction [Unknown]
  - Oesophageal achalasia [Unknown]
  - Alveolitis [Unknown]
  - Acute kidney injury [Unknown]
  - Confusional state [Unknown]
  - Pulmonary arterial pressure increased [Unknown]
  - Pyramidal tract syndrome [Unknown]
